FAERS Safety Report 9555701 (Version 1)
Quarter: 2013Q3

REPORT INFORMATION
  Report Type: Spontaneous
  Country: US (occurrence: None)
  Receive Date: 20130821
  Receipt Date: 20130821
  Transmission Date: 20140515
  Serious: Yes (Hospitalization)
  Sender: FDA-Public Use
  Company Number: 2013AP005039

PATIENT
  Age: 70 Year
  Sex: Male

DRUGS (1)
  1. RAMIPRIL [Suspect]
     Indication: HYPERTENSION

REACTIONS (1)
  - Angioedema [None]
